FAERS Safety Report 9838809 (Version 1)
Quarter: 2013Q4

REPORT INFORMATION
  Report Type: Spontaneous
  Country: US (occurrence: None)
  Receive Date: 20131205
  Receipt Date: 20131205
  Transmission Date: 20140711
  Serious: Yes (Hospitalization)
  Sender: FDA-Public Use
  Company Number: 163-POMAL-13111176

PATIENT
  Age: 64 Year
  Sex: Male
  Weight: 85.7 kg

DRUGS (9)
  1. POMALYST [Suspect]
     Indication: PLASMA CELL MYELOMA
     Route: 048
     Dates: start: 20130430
  2. CENTRUM SILVER (CENTRUM SILVER) (TABLETS) [Concomitant]
  3. EFFEXOR (VENLAFAXINE HYDROCHLORIDE) CAPSULES [Concomitant]
  4. PROTONIX (TABLETS) [Concomitant]
  5. CELEBREX (CELECOXIB)(CAPSULES) [Concomitant]
  6. DEXAMETHASONE (DEXAMETHASONE (TABLETS) [Concomitant]
  7. FUROSEMIDE (FUROSEMIDE) (TABLETS) [Concomitant]
  8. LIPITOR (ATORVASTATIN) (TABLETS) [Concomitant]
  9. GABAPENTIN (GABAPENTIN) (CAPSULES) [Concomitant]

REACTIONS (2)
  - Pneumonia [None]
  - Thrombosis [None]
